FAERS Safety Report 4353033-8 (Version None)
Quarter: 2004Q2

REPORT INFORMATION
  Report Type: 
  Country: None (occurrence: None)
  Receive Date: 20040429
  Receipt Date: 20040419
  Transmission Date: 20050107
  Serious: Yes (Hospitalization)
  Sender: FDA-Public Use
  Company Number: S04-FRA-01800-01

PATIENT
  Age: 70 Year
  Sex: Female

DRUGS (2)
  1. SEROPRAM (CITALOPRAM HYDROBROMIDE) [Suspect]
     Indication: MAJOR DEPRESSION
     Dates: start: 20040201, end: 20040401
  2. BENZODIAZEPINE DERIVATIVES [Concomitant]

REACTIONS (4)
  - BLOOD AMYLASE INCREASED [None]
  - CONJUNCTIVAL HAEMORRHAGE [None]
  - LOSS OF CONSCIOUSNESS [None]
  - PURPURA [None]
